FAERS Safety Report 6305136-6 (Version None)
Quarter: 2009Q3

REPORT INFORMATION
  Report Type: 
  Country: None (occurrence: None)
  Receive Date: 20090811
  Receipt Date: 20090805
  Transmission Date: 20100115
  Serious: Yes (Hospitalization)
  Sender: FDA-Public Use
  Company Number: FR-BAYER-200927688GPV

PATIENT
  Age: 70 Year
  Sex: Male

DRUGS (7)
  1. CIFLOX [Suspect]
     Indication: PROSTATITIS
     Route: 065
  2. ROCEPHIN [Suspect]
     Indication: PROSTATITIS
     Route: 065
  3. DEPAKENE [Concomitant]
     Indication: DRUG USE FOR UNKNOWN INDICATION
     Dosage: UNIT DOSE: 500 MG
     Route: 048
  4. DRIPTANE [Concomitant]
     Indication: DRUG USE FOR UNKNOWN INDICATION
     Dosage: TOTAL DAILY DOSE: 1 DF
     Route: 048
  5. LEVOTHYROX [Concomitant]
     Indication: HYPOTHYROIDISM
     Dosage: UNIT DOSE: 25 ?G
     Route: 048
  6. ZYLORIC [Concomitant]
     Indication: HYPERURICAEMIA
     Dosage: UNIT DOSE: 200 MG
     Route: 048
  7. TIMOPTIC [Concomitant]
     Indication: GLAUCOMA
     Route: 048

REACTIONS (4)
  - ACUTE GENERALISED EXANTHEMATOUS PUSTULOSIS [None]
  - CHOLESTASIS [None]
  - CYTOLYTIC HEPATITIS [None]
  - TOXIC SKIN ERUPTION [None]
